FAERS Safety Report 5239579-9 (Version None)
Quarter: 2007Q1

REPORT INFORMATION
  Report Type: 
  Country: None (occurrence: None)
  Receive Date: 20070216
  Receipt Date: 20070205
  Transmission Date: 20070707
  Serious: Yes (Other)
  Sender: FDA-Public Use
  Company Number: 2007AC00270

PATIENT
  Age: 21 Year
  Sex: Female

DRUGS (2)
  1. PROPOFOL [Suspect]
     Indication: ANAESTHESIA
  2. SEVOFLURANE [Concomitant]
     Indication: ANAESTHESIA
     Dosage: 0.4 - 1.4 %

REACTIONS (2)
  - DRUG EXPOSURE DURING PREGNANCY [None]
  - METABOLIC ACIDOSIS [None]
